FAERS Safety Report 4464353-0 (Version None)
Quarter: 2004Q4

REPORT INFORMATION
  Report Type: 
  Country: None (occurrence: None)
  Receive Date: 20041001
  Receipt Date: 20040727
  Transmission Date: 20050328
  Serious: Yes (Other)
  Sender: FDA-Public Use
  Company Number: DE-MERCK-0407DEU00206

PATIENT
  Age: 64 Year
  Sex: Female

DRUGS (3)
  1. DEXAMETHASONE [Concomitant]
     Route: 065
  2. VIOXX [Suspect]
     Indication: ARTHRALGIA
     Route: 048
     Dates: start: 20040715, end: 20040715
  3. TRAMADOL HYDROCHLORIDE [Concomitant]
     Route: 065

REACTIONS (9)
  - ANGIONEUROTIC OEDEMA [None]
  - CONVULSION [None]
  - ERYTHEMA [None]
  - FEELING HOT [None]
  - HYPERHIDROSIS [None]
  - HYPERSENSITIVITY [None]
  - LACRIMATION INCREASED [None]
  - OEDEMA PERIPHERAL [None]
  - SHOCK [None]
